FAERS Safety Report 7564958-4 (Version None)
Quarter: 2011Q2

REPORT INFORMATION
  Report Type: 
  Country: None (occurrence: None)
  Receive Date: 20110622
  Receipt Date: 20110330
  Transmission Date: 20111010
  Serious: Yes (Death)
  Sender: FDA-Public Use
  Company Number: US-MYLANLABS-2011S1004414

PATIENT
  Age: 20 Year
  Sex: Male

DRUGS (3)
  1. SINGULAIR [Concomitant]
     Indication: ASTHMA
  2. CLOZAPINE [Suspect]
     Route: 048
     Dates: end: 20110101
  3. ZOCOR [Concomitant]
     Indication: BLOOD CHOLESTEROL INCREASED

REACTIONS (3)
  - MYOCARDIAL INFARCTION [None]
  - CARDIAC DEATH [None]
  - CARDIAC FAILURE CONGESTIVE [None]
